FAERS Safety Report 5112845-3 (Version None)
Quarter: 2006Q3

REPORT INFORMATION
  Report Type: 
  Country: None (occurrence: None)
  Receive Date: 20060922
  Receipt Date: 20060911
  Transmission Date: 20061208
  Serious: Yes (Hospitalization)
  Sender: FDA-Public Use
  Company Number: CHWYE898612SEP06

PATIENT
  Age: 84 Year
  Sex: Male

DRUGS (3)
  1. ENBREL [Suspect]
     Indication: PSORIASIS
     Dosage: UNKNOWN
     Route: 058
     Dates: end: 20060101
  2. ENBREL [Suspect]
     Route: 058
     Dates: start: 20060101
  3. PRADIF [Concomitant]

REACTIONS (3)
  - ATRIAL FIBRILLATION [None]
  - FURUNCLE [None]
  - SEPSIS [None]
